FAERS Safety Report 7649753-X (Version None)
Quarter: 2011Q3

REPORT INFORMATION
  Report Type: 
  Country: None (occurrence: None)
  Receive Date: 20110802
  Receipt Date: 20110720
  Transmission Date: 20111222
  Serious: Yes (Hospitalization)
  Sender: FDA-Public Use
  Company Number: US-ELI_LILLY_AND_COMPANY-US201107006536

PATIENT
  Sex: Male

DRUGS (4)
  1. ZYPREXA RELPREVV [Suspect]
     Indication: SCHIZOPHRENIA
     Dosage: 210 MG, (150 MG) EVERY TWO WEEKS
     Route: 065
     Dates: start: 20110520
  2. DEPAKOTE ER [Concomitant]
     Dosage: UNK, UNKNOWN
     Route: 065
  3. RISPERDAL [Concomitant]
     Dosage: UNK, UNKNOWN
     Route: 065
  4. CLOZAPINE [Concomitant]
     Dosage: UNK, UNKNOWN
     Route: 065

REACTIONS (1)
  - HOSPITALISATION [None]
